FAERS Safety Report 8155859-1 (Version None)
Quarter: 2012Q1

REPORT INFORMATION
  Report Type: 
  Country: None (occurrence: None)
  Receive Date: 20120222
  Receipt Date: 20120214
  Transmission Date: 20120608
  Serious: Yes (Other)
  Sender: FDA-Public Use
  Company Number: IT-UCBSA-051606

PATIENT
  Age: 48 Year
  Sex: Female

DRUGS (11)
  1. POLYETHYLENE GLYCOL [Concomitant]
  2. CRIZOTINIB [Suspect]
     Route: 048
     Dates: start: 20110105, end: 20111127
  3. DELTEPARIN SODIUM [Concomitant]
  4. LEVETIRACETAM [Suspect]
     Indication: EPILEPSY
     Route: 048
     Dates: start: 20111030
  5. VFEND [Suspect]
     Indication: BRONCHOPULMONARY ASPERGILLOSIS
     Dates: end: 20120119
  6. RANITIDINE [Concomitant]
     Dates: start: 20110101
  7. CRIZOTINIB [Suspect]
     Indication: LUNG ADENOCARCINOMA METASTATIC
     Route: 048
     Dates: start: 20111128
  8. CALCIUM CARBONATE [Concomitant]
     Dosage: 1000 MG
  9. DEXAMETHASONE [Concomitant]
     Dosage: DAILY DOSE: 32 GTT
  10. COLECALCIFEROL [Concomitant]
  11. FENTANYL CITRATE [Concomitant]

REACTIONS (4)
  - PNEUMONIA [None]
  - ALANINE AMINOTRANSFERASE INCREASED [None]
  - LYMPHOPENIA [None]
  - GAMMA-GLUTAMYLTRANSFERASE INCREASED [None]
